FAERS Safety Report 17242199 (Version 2)
Quarter: 2020Q1

REPORT INFORMATION
  Report Type: Spontaneous
  Country: US (occurrence: US)
  Receive Date: 20200107
  Receipt Date: 20200116
  Transmission Date: 20200409
  Serious: No
  Sender: FDA-Public Use
  Company Number: US-GW PHARMA-202001USGW00003

PATIENT

DRUGS (4)
  1. EPIDIOLEX [Suspect]
     Active Substance: CANNABIDIOL
     Dosage: 3RD WEEK OF TITRATION, UNK
     Route: 048
     Dates: start: 2019
  2. EPIDIOLEX [Suspect]
     Active Substance: CANNABIDIOL
     Indication: EPILEPSY
     Dosage: 220 MILLIGRAM, BID
     Route: 048
     Dates: start: 201911, end: 2019
  3. CLOBAZAM. [Concomitant]
     Active Substance: CLOBAZAM
     Indication: PRODUCT USED FOR UNKNOWN INDICATION
     Dosage: 2 MILLILITER, QD (QHS)
     Route: 065
  4. EPIDIOLEX [Suspect]
     Active Substance: CANNABIDIOL
     Dosage: 170 MILLIGRAM, BID
     Route: 048

REACTIONS (5)
  - Decreased appetite [Unknown]
  - Drug ineffective [Unknown]
  - Product use in unapproved indication [Not Recovered/Not Resolved]
  - Seizure [Unknown]
  - Gastroenteritis viral [Unknown]

NARRATIVE: CASE EVENT DATE: 2019
